FAERS Safety Report 6434280-8 (Version None)
Quarter: 2009Q4

REPORT INFORMATION
  Report Type: 
  Country: None (occurrence: None)
  Receive Date: 20091109
  Receipt Date: 20091109
  Transmission Date: 20100525
  Serious: No
  Sender: FDA-Public Use
  Company Number: None

PATIENT
  Sex: Female

DRUGS (1)
  1. BUPROPION HCL XL 150 MG 24 HR SUSTAINED RELEASE (TEVA) [Suspect]
     Indication: DEPRESSION
     Dosage: 150 MG DAILY PO
     Route: 048
     Dates: start: 20090401, end: 20091031

REACTIONS (2)
  - DEPRESSION [None]
  - DISEASE RECURRENCE [None]
